FAERS Safety Report 9552346 (Version 2)
Quarter: 2014Q1

REPORT INFORMATION
  Report Type: Report from Study
  Country: US (occurrence: US)
  Receive Date: 20130507
  Receipt Date: 20140107
  Transmission Date: 20141002
  Serious: Yes (Other)
  Sender: FDA-Public Use
  Company Number: PHEH2012US018870

PATIENT
  Sex: Female
  Weight: 47.62 kg

DRUGS (21)
  1. TASIGNA [Suspect]
     Indication: CHRONIC MYELOID LEUKAEMIA
     Dosage: 400 MG, BID
     Route: 048
  2. TASIGNA [Suspect]
     Dosage: 800 MG, BID
     Route: 048
  3. HYDROXYUREA [Concomitant]
     Dosage: 500 MG, BID
     Route: 048
  4. ALBUTEROL [Concomitant]
     Dosage: UNK
     Route: 055
  5. ANAGRELIDE [Concomitant]
     Dosage: 1 MG, TID
     Route: 048
  6. VITAMIN D3 [Concomitant]
     Dosage: 1 DF, QW
  7. ADVAIR [Concomitant]
     Route: 055
  8. NEURONTIN [Concomitant]
     Dosage: 1 DF, TID
     Route: 048
  9. MUCINEX [Concomitant]
     Route: 048
  10. LOPERAMIDE HCL [Concomitant]
     Dosage: 1 DF, QHS
     Route: 048
  11. CLARITIN [Concomitant]
     Dosage: 10 MG, AS NEEDED
     Route: 048
  12. COMPAZINE [Concomitant]
     Dosage: 1 DF, AS NEEDED
  13. INDERAL [Concomitant]
     Dosage: 10 MG, QD
     Route: 048
  14. CALCITROL [Concomitant]
     Dosage: 0.25 UG, UNK
  15. ZOCOR [Concomitant]
     Dosage: 40 MG, DAILY
     Route: 048
  16. IPRATROPIUM [Concomitant]
     Dosage: 0.02 %, UNK
     Route: 055
  17. PROCHLORPERAZINE [Concomitant]
     Dosage: 10 MG, AS NEEDED
     Route: 048
  18. FOLIC ACID [Concomitant]
     Dosage: 1 MG, UNK
  19. ARMOUR THYROID [Concomitant]
     Dosage: 60 MG, QD
     Route: 048
  20. SPIRIVA [Concomitant]
     Dosage: 18 UG, DAILY
     Route: 055
  21. ASPIRIN [Concomitant]
     Dosage: 81 MG, UNK

REACTIONS (14)
  - Neuropathy peripheral [Unknown]
  - Weight decreased [Unknown]
  - Constipation [Unknown]
  - Nausea [Unknown]
  - Diarrhoea [Unknown]
  - Palpitations [Unknown]
  - Dizziness [Unknown]
  - Pain [Unknown]
  - Fatigue [Unknown]
  - Pyrexia [Unknown]
  - Headache [Unknown]
  - Asthenia [Unknown]
  - Contusion [Unknown]
  - Drug ineffective [Unknown]
